FAERS Safety Report 9454075 (Version 1)
Quarter: 2013Q3

REPORT INFORMATION
  Report Type: Spontaneous
  Country: IT (occurrence: IT)
  Receive Date: 20130812
  Receipt Date: 20130812
  Transmission Date: 20140515
  Serious: Yes (Hospitalization)
  Sender: FDA-Public Use
  Company Number: IT-GENZYME-THYR-1000982

PATIENT
  Age: 33 Year
  Sex: Female

DRUGS (7)
  1. THYROGEN [Suspect]
     Indication: PRODUCT USED FOR UNKNOWN INDICATION
     Dosage: 0.9 MG (1 AMP), QD
     Route: 065
     Dates: start: 20130701, end: 20130702
  2. TIROSINT [Concomitant]
     Indication: HYPOTHYROIDISM
     Dosage: 125 MCG, UNK
     Route: 048
  3. RIVOTRIL [Concomitant]
     Indication: PRODUCT USED FOR UNKNOWN INDICATION
     Dosage: 0.5 MG, UNK
     Route: 048
  4. CIPRALEX [Concomitant]
     Indication: PRODUCT USED FOR UNKNOWN INDICATION
     Dosage: 20 MG, UNK
     Route: 048
  5. TRIMETON [Concomitant]
     Indication: PREMEDICATION
     Dosage: 10 MG (1 AMP), UNK
     Route: 065
     Dates: start: 20130702
  6. DELTACORTENE [Concomitant]
     Indication: PREMEDICATION
     Dosage: 25 MG, UNK
     Route: 065
     Dates: start: 20130702
  7. RANIDIL [Concomitant]
     Indication: PREMEDICATION
     Dosage: 300 MG, UNK
     Route: 065
     Dates: start: 20130702

REACTIONS (3)
  - Lip swelling [Recovered/Resolved]
  - Pruritus [Recovered/Resolved]
  - Rash [Recovered/Resolved]
